FAERS Safety Report 8556640-1 (Version None)
Quarter: 2012Q3

REPORT INFORMATION
  Report Type: 
  Country: None (occurrence: None)
  Receive Date: 20120801
  Receipt Date: 20120726
  Transmission Date: 20120928
  Serious: Yes (Hospitalization)
  Sender: FDA-Public Use
  Company Number: CA-BRISTOL-MYERS SQUIBB COMPANY-16813586

PATIENT
  Age: 56 Year
  Sex: Male

DRUGS (7)
  1. IPILIMUMAB [Suspect]
     Indication: MALIGNANT MELANOMA
     Dosage: NO. OF COURSES:3
     Route: 042
     Dates: start: 20120531
  2. WARFARIN [Concomitant]
     Indication: ATRIAL FIBRILLATION
     Route: 048
  3. ASPIRIN [Concomitant]
  4. MULTI-VITAMIN [Concomitant]
     Dosage: 1 DF: 1 TABLET
  5. METOPROLOL TARTRATE [Concomitant]
     Indication: ATRIAL FIBRILLATION
  6. IBUPROFEN (ADVIL) [Concomitant]
     Dosage: EVERY 4 HOURS
  7. TYLENOL W/ CODEINE NO. 2 [Concomitant]
     Dosage: 1 DF: 1-2 TABLETS, EVERY 6 HRS.

REACTIONS (2)
  - VOMITING [None]
  - DEHYDRATION [None]
